FAERS Safety Report 17354634 (Version 1)
Quarter: 2020Q1

REPORT INFORMATION
  Report Type: Spontaneous
  Country: US (occurrence: US)
  Receive Date: 20200131
  Receipt Date: 20200131
  Transmission Date: 20200409
  Serious: No
  Sender: FDA-Public Use
  Company Number: US-SUNOVION-2020SUN000127

PATIENT
  Age: 42 Year
  Sex: Female
  Weight: 87.08 kg

DRUGS (1)
  1. LATUDA [Suspect]
     Active Substance: LURASIDONE HYDROCHLORIDE
     Indication: BIPOLAR I DISORDER
     Dosage: 20 MG, UNK
     Route: 048
     Dates: start: 201911

REACTIONS (3)
  - Fatigue [Not Recovered/Not Resolved]
  - Product administration error [Unknown]
  - Gastrooesophageal reflux disease [Not Recovered/Not Resolved]

NARRATIVE: CASE EVENT DATE: 20200112
